FAERS Safety Report 20414652 (Version 1)
Quarter: 2022Q1

REPORT INFORMATION
  Report Type: Spontaneous
  Country: US (occurrence: US)
  Receive Date: 20220202
  Receipt Date: 20220202
  Transmission Date: 20220423
  Serious: Yes (Hospitalization)
  Sender: FDA-Public Use
  Company Number: US-CELGENE-USA-20220107768

PATIENT
  Age: 82 Year
  Sex: Female

DRUGS (2)
  1. REVLIMID [Suspect]
     Active Substance: LENALIDOMIDE
     Indication: Diffuse large B-cell lymphoma
     Dosage: 2.5 MILLIGRAM
     Route: 048
     Dates: start: 202201
  2. REVLIMID [Suspect]
     Active Substance: LENALIDOMIDE
     Indication: Off label use

REACTIONS (2)
  - Haemoglobin decreased [Recovering/Resolving]
  - Gout [Unknown]

NARRATIVE: CASE EVENT DATE: 20220118
